FAERS Safety Report 9126633 (Version 1)
Quarter: 2013Q1

REPORT INFORMATION
  Report Type: Spontaneous
  Country: US (occurrence: US)
  Receive Date: 20130228
  Receipt Date: 20130228
  Transmission Date: 20140127
  Serious: No
  Sender: FDA-Public Use
  Company Number: US-009507513-1302USA011894

PATIENT
  Age: 60 Year
  Sex: Female

DRUGS (1)
  1. CLARINEX [Suspect]
     Indication: ALLERGIC SINUSITIS

REACTIONS (1)
  - Drug ineffective [Unknown]
